FAERS Safety Report 26140015 (Version 1)
Quarter: 2025Q4

REPORT INFORMATION
  Report Type: Spontaneous
  Country: US (occurrence: None)
  Receive Date: 20251209
  Receipt Date: 20251209
  Transmission Date: 20260117
  Serious: Yes (Other)
  Sender: FDA-CTU
  Company Number: None

PATIENT
  Sex: Male

DRUGS (4)
  1. GAMUNEX [Suspect]
     Active Substance: HUMAN IMMUNOGLOBULIN G
  2. Gamunex 10G [Concomitant]
     Dates: start: 20251201, end: 20251201
  3. Gamunex 5G [Concomitant]
     Dates: end: 20251208
  4. Gamunex 1G [Concomitant]
     Dates: end: 20251208

REACTIONS (3)
  - Infusion related reaction [None]
  - Urticaria [None]
  - Pruritus [None]

NARRATIVE: CASE EVENT DATE: 20251201
